FAERS Safety Report 14566447 (Version 1)
Quarter: 2018Q1

REPORT INFORMATION
  Report Type: Spontaneous
  Country: ES (occurrence: ES)
  Receive Date: 20180223
  Receipt Date: 20180223
  Transmission Date: 20180509
  Serious: Yes (Hospitalization)
  Sender: FDA-Public Use
  Company Number: ES-AUROBINDO-AUR-APL-2018-009182

PATIENT
  Age: 57 Year
  Sex: Male

DRUGS (1)
  1. SIMVASTATIN. [Suspect]
     Active Substance: SIMVASTATIN
     Indication: DYSLIPIDAEMIA
     Dosage: 0-0-1
     Route: 048
     Dates: start: 20130101, end: 20171122

REACTIONS (4)
  - Pyrexia [Recovered/Resolved]
  - Urticaria [Recovered/Resolved]
  - Eosinophilia [Recovered/Resolved]
  - Acute motor-sensory axonal neuropathy [Recovering/Resolving]
